FAERS Safety Report 17745792 (Version 3)
Quarter: 2020Q2

REPORT INFORMATION
  Report Type: Spontaneous
  Country: US (occurrence: US)
  Receive Date: 20200505
  Receipt Date: 20200625
  Transmission Date: 20200714
  Serious: Yes (Other)
  Sender: FDA-Public Use
  Company Number: US-SA-2020SA106258

PATIENT

DRUGS (1)
  1. LANTUS SOLOSTAR [Suspect]
     Active Substance: INSULIN GLARGINE
     Indication: TYPE 2 DIABETES MELLITUS
     Dosage: 25 IU, QD(AT EVENING )
     Route: 065

REACTIONS (3)
  - Diabetes mellitus inadequate control [Unknown]
  - Wrong technique in product usage process [Unknown]
  - Drug ineffective [Unknown]
